FAERS Safety Report 9854709 (Version 2)
Quarter: 2014Q2

REPORT INFORMATION
  Report Type: Report from Study
  Country: US (occurrence: US)
  Receive Date: 20140130
  Receipt Date: 20140421
  Transmission Date: 20141212
  Serious: Yes (Other)
  Sender: FDA-Public Use
  Company Number: US-ROCHE-1337873

PATIENT
  Age: 8 Year
  Sex: Male
  Weight: 24.9 kg

DRUGS (2)
  1. NUTROPIN AQ [Suspect]
     Indication: GROWTH HORMONE DEFICIENCY
     Dosage: 2ML INCREASED THE DOSE GRADUALLY (0.4, 0.6, 0.8 AND 1 MG)
     Route: 058
     Dates: start: 20121207
  2. APIDRA [Concomitant]
     Indication: DIABETES MELLITUS
     Route: 058
     Dates: start: 20130102

REACTIONS (5)
  - Hyperglycaemia [Unknown]
  - Headache [Unknown]
  - Glycosylated haemoglobin increased [Unknown]
  - Hypoglycaemia [Unknown]
  - Night sweats [Not Recovered/Not Resolved]
